FAERS Safety Report 19434003 (Version 1)
Quarter: 2021Q2

REPORT INFORMATION
  Report Type: Other
  Country: US (occurrence: US)
  Receive Date: 20210617
  Receipt Date: 20210617
  Transmission Date: 20210717
  Serious: No
  Sender: FDA-Public Use
  Company Number: US-ROCHE-2632976

PATIENT
  Age: 68 Year
  Sex: Male

DRUGS (5)
  1. TOCILIZUMAB. [Suspect]
     Active Substance: TOCILIZUMAB
     Indication: COVID-19 PNEUMONIA
     Dosage: AT 100 ML/H ADMINISTERED OVER 60 MIN
     Route: 042
  2. LENZILUMAB. [Concomitant]
     Active Substance: LENZILUMAB
     Dosage: A TOTAL OF 3 DOSES OF INTRAVENOUS LENZILUMAB 600 MG IN THE INITIAL 36 H OF HOSPITAL ADMISSION
  3. ASPIRIN. [Concomitant]
     Active Substance: ASPIRIN
  4. HYDROXYCHLOROQUINE [Concomitant]
     Active Substance: HYDROXYCHLOROQUINE
     Dosage: FOR TWO DOSES
  5. HYDROXYCHLOROQUINE [Concomitant]
     Active Substance: HYDROXYCHLOROQUINE
     Dosage: FOR AN ADDITIONAL 4 DAYS

REACTIONS (3)
  - No adverse event [Unknown]
  - Intentional product use issue [Unknown]
  - Off label use [Unknown]
